FAERS Safety Report 18485000 (Version 4)
Quarter: 2021Q1

REPORT INFORMATION
  Report Type: Spontaneous
  Country: FR (occurrence: FR)
  Receive Date: 20201110
  Receipt Date: 20210315
  Transmission Date: 20210419
  Serious: Yes (Death, Hospitalization, Other)
  Sender: FDA-Public Use
  Company Number: FR-MYLANLABS-2020M1093890

PATIENT
  Age: 40 Year
  Sex: Female
  Weight: 172 kg

DRUGS (6)
  1. PACLITAXEL. [Suspect]
     Active Substance: PACLITAXEL
     Dosage: 90 MG/M2, CYCLIC (ON DAY1, DAY8, DAY15 EVERY 28 DAYS CYCLE; TOTAL OF 6 COURSES)
     Route: 042
     Dates: start: 20200424, end: 20200803
  2. PALBOCICLIB [Concomitant]
     Active Substance: PALBOCICLIB
     Indication: BREAST CANCER METASTATIC
     Dosage: UNK
     Route: 065
     Dates: start: 201808, end: 202002
  3. FEMARA [Concomitant]
     Active Substance: LETROZOLE
     Indication: BREAST CANCER METASTATIC
     Dosage: UNK
     Route: 065
     Dates: start: 201808, end: 202002
  4. PACLITAXEL. [Suspect]
     Active Substance: PACLITAXEL
     Dosage: 90 MG/M2, CYCLIC (ON DAY1, DAY8, DAY15 EVERY)
     Route: 042
     Dates: start: 202003
  5. ENANTONE LP [Suspect]
     Active Substance: LEUPROLIDE ACETATE
     Indication: BREAST CANCER METASTATIC
     Dosage: UNK
     Route: 065
     Dates: start: 201808, end: 202002
  6. PACLITAXEL. [Suspect]
     Active Substance: PACLITAXEL
     Indication: BREAST CANCER METASTATIC
     Dosage: UNK
     Route: 042
     Dates: start: 202003, end: 2020

REACTIONS (14)
  - Metastases to liver [Fatal]
  - Hepatomegaly [Unknown]
  - C-reactive protein increased [Unknown]
  - Malignant neoplasm progression [Fatal]
  - Generalised oedema [Fatal]
  - Hepatocellular injury [Unknown]
  - Portal hypertension [Unknown]
  - Neutrophil count increased [Unknown]
  - Anaemia [Unknown]
  - Blood urea increased [Unknown]
  - Cell death [Unknown]
  - Hepatic failure [Fatal]
  - Acute kidney injury [Fatal]
  - Hepatitis fulminant [Unknown]

NARRATIVE: CASE EVENT DATE: 2020
